FAERS Safety Report 4909813-0 (Version None)
Quarter: 2006Q1

REPORT INFORMATION
  Report Type: 
  Country: None (occurrence: None)
  Receive Date: 20060208
  Receipt Date: 20060124
  Transmission Date: 20060701
  Serious: Yes (Death)
  Sender: FDA-Public Use
  Company Number: 2006-US-00556

PATIENT
  Age: 21 Year
  Sex: Female

DRUGS (2)
  1. MISOPROSTOL [Suspect]
     Indication: ABORTION
     Dosage: 800 UG, VAGINAL; ONCE
     Route: 067
  2. MIFEPRISTONE [Suspect]
     Indication: ABORTION
     Dosage: 200 MG, ORAL; ONCE
     Route: 048

REACTIONS (16)
  - ABDOMINAL PAIN [None]
  - BACTERIAL INFECTION [None]
  - CARDIAC ARREST [None]
  - CLOSTRIDIAL INFECTION [None]
  - ENDOMETRITIS [None]
  - LOSS OF CONSCIOUSNESS [None]
  - MYOMETRITIS [None]
  - NECROSIS [None]
  - POST ABORTION COMPLICATION [None]
  - POST ABORTION HAEMORRHAGE [None]
  - POST PROCEDURAL COMPLICATION [None]
  - PUPIL FIXED [None]
  - RESPIRATORY ARREST [None]
  - RETAINED PRODUCTS OF CONCEPTION [None]
  - UTERINE HAEMORRHAGE [None]
  - VOMITING [None]
